FAERS Safety Report 15105486 (Version 3)
Quarter: 2018Q4

REPORT INFORMATION
  Report Type: Report from Study
  Country: None (occurrence: US)
  Receive Date: 20180704
  Receipt Date: 20181104
  Transmission Date: 20190204
  Serious: Yes (Hospitalization)
  Sender: FDA-Public Use
  Company Number: US-ABBVIE-18K-163-2405800-00

PATIENT
  Age: 82 Year
  Sex: Male

DRUGS (1)
  1. HUMIRA [Suspect]
     Active Substance: ADALIMUMAB
     Indication: COLITIS ULCERATIVE
     Route: 058

REACTIONS (11)
  - Weight decreased [Unknown]
  - Enterococcal sepsis [Unknown]
  - Diarrhoea [Not Recovered/Not Resolved]
  - Diabetic ketoacidosis [Unknown]
  - Contusion [Unknown]
  - Fall [Recovering/Resolving]
  - Spinal fracture [Recovering/Resolving]
  - Pancreatic disorder [Unknown]
  - Herpes zoster [Unknown]
  - Head injury [Recovering/Resolving]
  - Loss of consciousness [Unknown]

NARRATIVE: CASE EVENT DATE: 2018
